FAERS Safety Report 6360754-4 (Version None)
Quarter: 2009Q3

REPORT INFORMATION
  Report Type: 
  Country: None (occurrence: None)
  Receive Date: 20090918
  Receipt Date: 20090911
  Transmission Date: 20100115
  Serious: Yes (Other)
  Sender: FDA-Public Use
  Company Number: FR-JNJFOC-20090809218

PATIENT
  Sex: Female
  Weight: 83 kg

DRUGS (6)
  1. HALDOL [Suspect]
     Route: 065
  2. HALDOL [Suspect]
     Indication: DRUG USE FOR UNKNOWN INDICATION
     Route: 065
  3. TERCIAN [Suspect]
     Indication: DRUG USE FOR UNKNOWN INDICATION
     Route: 065
  4. RIVOTRIL [Suspect]
     Indication: DRUG USE FOR UNKNOWN INDICATION
     Route: 065
  5. FEMARA [Concomitant]
     Indication: BREAST CANCER
     Route: 065
  6. ENDOTELON [Concomitant]
     Route: 065

REACTIONS (4)
  - CHOLELITHIASIS [None]
  - HEPATIC STEATOSIS [None]
  - MULTIPLE SCLEROSIS [None]
  - WEIGHT INCREASED [None]
